FAERS Safety Report 10156722 (Version 1)
Quarter: 2014Q2

REPORT INFORMATION
  Report Type: Spontaneous
  Country: US (occurrence: None)
  Receive Date: 20140506
  Receipt Date: 20140506
  Transmission Date: 20141212
  Serious: Yes (Hospitalization)
  Sender: FDA-Public Use
  Company Number: None

PATIENT
  Age: 55 Year
  Sex: Male

DRUGS (8)
  1. PHENYTOIN [Suspect]
     Indication: CONVULSION PROPHYLAXIS
     Route: 048
     Dates: start: 20130308, end: 20130317
  2. LAMIVUDINE [Concomitant]
  3. ZIDOVUDINE [Concomitant]
  4. ABACAVIR [Concomitant]
  5. LANIVUDINE [Concomitant]
  6. LEVETIRACETAM [Concomitant]
  7. CARBAMAZEPINE [Concomitant]
  8. ATAZANAVIR [Concomitant]

REACTIONS (6)
  - Toxicity to various agents [None]
  - Fall [None]
  - Nystagmus [None]
  - Dizziness [None]
  - Gait disturbance [None]
  - Cerebellar syndrome [None]
